FAERS Safety Report 8457792-4 (Version None)
Quarter: 2012Q2

REPORT INFORMATION
  Report Type: 
  Country: None (occurrence: None)
  Receive Date: 20120618
  Receipt Date: 20120618
  Transmission Date: 20120825
  Serious: Yes (Hospitalization)
  Sender: FDA-Public Use
  Company Number: None

PATIENT
  Sex: Female
  Weight: 56.3 kg

DRUGS (8)
  1. XALITAN [Concomitant]
  2. FLUOROURACIL [Suspect]
     Dosage: 4327 MG
     Dates: end: 20120613
  3. CRESTOR [Concomitant]
  4. SYNTHROID [Concomitant]
  5. LEUCOVORIN CALCIUM [Suspect]
     Dosage: 625 MG
     Dates: end: 20120611
  6. ASPIRIN [Concomitant]
  7. ELOXATIN [Suspect]
     Dosage: 130 MG
     Dates: end: 20120611
  8. SINGULAIR [Concomitant]

REACTIONS (5)
  - VOMITING [None]
  - ISCHAEMIA [None]
  - HOT FLUSH [None]
  - NAUSEA [None]
  - CHEST DISCOMFORT [None]
